FAERS Safety Report 7677386-8 (Version None)
Quarter: 2011Q3

REPORT INFORMATION
  Report Type: 
  Country: None (occurrence: None)
  Receive Date: 20110808
  Receipt Date: 20110725
  Transmission Date: 20111222
  Serious: Yes (Life-Threatening, Other)
  Sender: FDA-Public Use
  Company Number: DSU-2010-05105

PATIENT
  Age: 42 Year
  Sex: Male
  Weight: 90 kg

DRUGS (5)
  1. OLMESARTAN MEDOXOMIL [Suspect]
     Indication: PRODUCT USED FOR UNKNOWN INDICATION
     Dosage: 20 MG (20 MG, QD), PER ORAL, 40 MG (40 MG, QD), PER ORAL
     Route: 048
     Dates: start: 20091001
  2. OLMESARTAN MEDOXOMIL [Suspect]
     Indication: PRODUCT USED FOR UNKNOWN INDICATION
     Dosage: 20 MG (20 MG, QD), PER ORAL, 40 MG (40 MG, QD), PER ORAL
     Route: 048
     Dates: end: 20091001
  3. OLMETEC PLUS (HYDROCHLOROTHIAZIDE, OLMESARTAN MEDOXOMIL) (TABLET) (HYD [Suspect]
     Indication: HYPERTENSION
     Dosage: 40/12.5 MG (QD), PER ORAL, 40/25 MG (QD), PER ORAL
     Route: 048
     Dates: end: 20100101
  4. OLMETEC PLUS (HYDROCHLOROTHIAZIDE, OLMESARTAN MEDOXOMIL) (TABLET) (HYD [Suspect]
     Indication: HYPERTENSION
     Dosage: 40/12.5 MG (QD), PER ORAL, 40/25 MG (QD), PER ORAL
     Route: 048
     Dates: start: 20100201, end: 20100201
  5. NOTEN (ATENOLOL) (50 MILLIGRAM) (ATENOLOL) [Suspect]
     Indication: ISCHAEMIA
     Dates: end: 20100101

REACTIONS (19)
  - TOTAL LUNG CAPACITY DECREASED [None]
  - SYNCOPE [None]
  - BLOOD PRESSURE FLUCTUATION [None]
  - WEIGHT INCREASED [None]
  - TACHYCARDIA [None]
  - DYSPNOEA [None]
  - PRODUCTIVE COUGH [None]
  - LETHARGY [None]
  - RENAL IMPAIRMENT [None]
  - ANGIOTENSIN CONVERTING ENZYME INCREASED [None]
  - NOREPINEPHRINE INCREASED [None]
  - FATIGUE [None]
  - HYPERSOMNIA [None]
  - HYPERHIDROSIS [None]
  - BLOOD MAGNESIUM DECREASED [None]
  - NEPHROLITHIASIS [None]
  - ISCHAEMIA [None]
  - HEADACHE [None]
  - PNEUMONIA [None]
